FAERS Safety Report 19945026 (Version 2)
Quarter: 2021Q4

REPORT INFORMATION
  Report Type: Spontaneous
  Country: US (occurrence: None)
  Receive Date: 20211011
  Receipt Date: 20211201
  Transmission Date: 20220303
  Serious: Yes (Hospitalization)
  Sender: FDA-Public Use
  Company Number: 2021A760297

PATIENT
  Age: 92 Year
  Sex: Female
  Weight: 42.6 kg

DRUGS (1)
  1. SYMBICORT [Suspect]
     Active Substance: BUDESONIDE\FORMOTEROL FUMARATE DIHYDRATE
     Indication: Chronic obstructive pulmonary disease
     Dosage: 160/4.5 UG, TWO PUFFS TWO TIMES A DAY
     Route: 055
     Dates: start: 2019

REACTIONS (4)
  - Pleural effusion [Recovered/Resolved]
  - Dyspnoea exertional [Not Recovered/Not Resolved]
  - Device use issue [Not Recovered/Not Resolved]
  - Device malfunction [Unknown]

NARRATIVE: CASE EVENT DATE: 20210101
